FAERS Safety Report 8290798-7 (Version None)
Quarter: 2012Q2

REPORT INFORMATION
  Report Type: 
  Country: None (occurrence: None)
  Receive Date: 20120412
  Receipt Date: 20120412
  Transmission Date: 20120825
  Serious: Yes (Death, Hospitalization)
  Sender: FDA-Public Use
  Company Number: None

PATIENT
  Age: 79 Year
  Sex: Female
  Weight: 73.9363 kg

DRUGS (2)
  1. MULTAQ VS PLACEBO 400 MG B.I.D. SANOFI-AVENTIS [Suspect]
     Indication: ATRIAL FIBRILLATION
     Dosage: 400MG BID ORAL
     Route: 048
     Dates: start: 20110315, end: 20120321
  2. MULTAQ [Suspect]

REACTIONS (2)
  - CARDIO-RESPIRATORY ARREST [None]
  - ATRIOVENTRICULAR DISSOCIATION [None]
